FAERS Safety Report 6086234-1 (Version None)
Quarter: 2009Q1

REPORT INFORMATION
  Report Type: 
  Country: None (occurrence: None)
  Receive Date: 20090220
  Receipt Date: 20090210
  Transmission Date: 20090719
  Serious: Yes (Death, Other)
  Sender: FDA-Public Use
  Company Number: US-BAXTER-2008BH003946

PATIENT
  Age: 61 Year
  Sex: Female

DRUGS (8)
  1. HEPARIN SODIUM INJECTION [Suspect]
     Indication: DRUG USE FOR UNKNOWN INDICATION
     Route: 065
     Dates: start: 20070101
  2. HEPARIN SODIUM INJECTION [Suspect]
     Route: 042
     Dates: start: 20070101
  3. HEPARIN SODIUM INJECTION [Suspect]
     Route: 042
     Dates: start: 20081029, end: 20081202
  4. HEPARIN SODIUM INJECTION [Suspect]
     Route: 058
     Dates: start: 20081029, end: 20081202
  5. ASPIRIN [Concomitant]
     Indication: DRUG USE FOR UNKNOWN INDICATION
     Route: 065
  6. LASIX [Concomitant]
     Indication: DRUG USE FOR UNKNOWN INDICATION
     Route: 065
  7. CAPOTEN [Concomitant]
     Indication: DRUG USE FOR UNKNOWN INDICATION
     Route: 065
  8. HYDREA [Concomitant]
     Indication: DRUG USE FOR UNKNOWN INDICATION
     Route: 065

REACTIONS (11)
  - ABDOMINAL PAIN [None]
  - CHEST PAIN [None]
  - DEATH [None]
  - DIARRHOEA [None]
  - DYSPNOEA [None]
  - FLUID RETENTION [None]
  - HYPOTENSION [None]
  - OEDEMA [None]
  - RECTAL HAEMORRHAGE [None]
  - RENAL IMPAIRMENT [None]
  - VOMITING [None]
